FAERS Safety Report 9477335 (Version 4)
Quarter: 2015Q1

REPORT INFORMATION
  Report Type: Spontaneous
  Country: FR (occurrence: FR)
  Receive Date: 20130826
  Receipt Date: 20150324
  Transmission Date: 20150721
  Serious: Yes (Hospitalization, Other)
  Sender: FDA-Public Use
  Company Number: FR-ROCHE-1265482

PATIENT
  Sex: Male
  Weight: 72 kg

DRUGS (53)
  1. LEXOMIL [Suspect]
     Active Substance: BROMAZEPAM
     Dosage: 0.50 TABLET AT LUNCHTIME AND 1 TABLET IN THE EVENING
     Route: 065
     Dates: start: 20070208
  2. LEXOMIL [Suspect]
     Active Substance: BROMAZEPAM
     Dosage: 0.50 TABLET AT LUNCHTIME AND 1 TABLET IN THE EVENING
     Route: 065
     Dates: start: 20070628
  3. VASTAREL [Suspect]
     Active Substance: TRIMETAZIDINE DIHYDROCHLORIDE
     Indication: PRODUCT USED FOR UNKNOWN INDICATION
     Route: 065
     Dates: start: 20050910
  4. STILNOX [Concomitant]
     Active Substance: ZOLPIDEM TARTRATE
     Dosage: ONE AT BEDTIME
     Route: 065
     Dates: start: 20061116
  5. CIFLOX (FRANCE) [Concomitant]
     Active Substance: CIPROFLOXACIN
     Dosage: ONE TABLET IN MORNING AND ONE IN EVENING
     Route: 065
     Dates: start: 20110906
  6. LYRICA [Suspect]
     Active Substance: PREGABALIN
     Dosage: 50 MG IN THE MORNING AND 50 MG AT LUNCHTILE FOR 8 DAYS THEN 75 MG IN THE MORNING AND 75 MG IN THE EV
     Route: 065
     Dates: start: 20100512
  7. BIOSTIM [Concomitant]
     Route: 065
     Dates: start: 2005, end: 2006
  8. STILNOX [Concomitant]
     Active Substance: ZOLPIDEM TARTRATE
     Dosage: ONE AT BEDTIME
     Route: 065
     Dates: start: 20070628
  9. STILNOX [Concomitant]
     Active Substance: ZOLPIDEM TARTRATE
     Dosage: ONE AT BEDTIME
     Route: 065
     Dates: start: 20071004
  10. STILNOX [Concomitant]
     Active Substance: ZOLPIDEM TARTRATE
     Dosage: ONE AT BEDTIME
     Route: 065
     Dates: start: 20080911
  11. COTRIATEC [Concomitant]
     Active Substance: HYDROCHLOROTHIAZIDE\RAMIPRIL
     Dosage: ONE TABLET IN MORNING
     Route: 065
  12. TRIATEC (FRANCE) [Concomitant]
     Active Substance: RAMIPRIL
     Route: 065
     Dates: start: 20140321
  13. VASTAREL [Suspect]
     Active Substance: TRIMETAZIDINE DIHYDROCHLORIDE
     Dosage: 1 TABLET IN MORNING, 1 TABLET IN EVENING.
     Route: 065
     Dates: start: 20100129
  14. AMLOR [Concomitant]
     Active Substance: AMLODIPINE BESYLATE
     Route: 065
     Dates: start: 20090616
  15. TIORFAN [Concomitant]
     Active Substance: RACECADOTRIL
     Dosage: ONE IN MORNING, ONE AT LUNCG TIM, ONE IN EVENING
     Route: 065
     Dates: start: 20100129
  16. VOGALENE [Concomitant]
     Active Substance: METOPIMAZINE
     Route: 065
     Dates: start: 20100129
  17. VOLTARENE [Concomitant]
     Active Substance: DICLOFENAC SODIUM
     Route: 065
     Dates: start: 20070411
  18. MEPRONIZINE [Concomitant]
     Active Substance: ACEPROMETAZINE MALEATE\MEPROBAMATE
     Route: 065
     Dates: start: 2005, end: 2006
  19. KETEK (FRANCE) [Concomitant]
     Dosage: 2 CAPSULES IN THE EVNEING
     Route: 065
     Dates: start: 20050407
  20. SEROPRAM [Concomitant]
     Active Substance: CITALOPRAM HYDROBROMIDE
     Dosage: 1 TABLET IN THE MORNING
     Route: 065
     Dates: start: 20070208
  21. PIRACETAM [Concomitant]
     Active Substance: PIRACETAM
     Dosage: ONE TABLET IN MORNING, ONE TABLET AT LUNCH TIME, ONE TABLET IN EVENING
     Route: 065
     Dates: start: 20070628
  22. PAROXETINE [Concomitant]
     Active Substance: PAROXETINE\PAROXETINE HYDROCHLORIDE
     Dosage: ONE TABLET IN MORNING
     Route: 065
     Dates: start: 20071004
  23. PAROXETINE [Concomitant]
     Active Substance: PAROXETINE\PAROXETINE HYDROCHLORIDE
     Dosage: ONE TABLET IN MORNING
     Route: 065
     Dates: start: 20080911
  24. LEXOMIL [Suspect]
     Active Substance: BROMAZEPAM
     Dosage: 0.50 TABLET AT LUNCHTIME AND 1 TABLET IN THE EVENING
     Route: 065
     Dates: start: 20060523
  25. LEXOMIL [Suspect]
     Active Substance: BROMAZEPAM
     Dosage: 0.50 TABLET AT LUNCHTIME AND 1 TABLET IN THE EVENING
     Route: 065
     Dates: start: 20071004
  26. LEXOMIL [Suspect]
     Active Substance: BROMAZEPAM
     Dosage: 0.50 TABLET AT LUNCHTIME AND 1 TABLET IN THE EVENING
     Route: 065
     Dates: start: 20080911
  27. TETRAZEPAM [Suspect]
     Active Substance: TETRAZEPAM
     Indication: PAIN
     Route: 065
     Dates: start: 2005, end: 2010
  28. SOLUPRED (FRANCE) [Concomitant]
     Active Substance: PREDNISOLONE
     Dosage: 2 TABLETS IN THE MORNING
     Route: 065
     Dates: start: 20050412
  29. SOUFRANE [Concomitant]
     Route: 065
     Dates: start: 2005, end: 2006
  30. ATURGYL [Concomitant]
     Active Substance: FENOXAZOLINE HYDROCHLORIDE
     Route: 065
     Dates: start: 2005, end: 2006
  31. SURGAM [Concomitant]
     Active Substance: TIAPROFENIC ACID
     Dosage: ONE TABLET IN MORNING AND ONE IN EVENING
     Route: 065
     Dates: start: 20050407
  32. SEROPRAM [Concomitant]
     Active Substance: CITALOPRAM HYDROBROMIDE
     Dosage: 1 TABLET IN THE MORNING
     Route: 065
     Dates: start: 20061116
  33. PIRACETAM [Concomitant]
     Active Substance: PIRACETAM
     Dosage: ONE TABLET IN MORNING, ONE TABLET AT LUNCH TIME, ONE TABLET IN EVENING
     Route: 065
     Dates: start: 20071004
  34. SMECTA [Concomitant]
     Active Substance: MONTMORILLONITE
     Dosage: 1 SACHET AT 10.00 AM AND ONE AT 4.00 PM
     Route: 065
     Dates: start: 20100129
  35. SPASFON-LYOC [Concomitant]
     Active Substance: PHLOROGLUCINOL
     Dosage: 1-1-1
     Route: 065
  36. LEXOMIL [Suspect]
     Active Substance: BROMAZEPAM
     Dosage: 0.50 TABLET AT LUNCHTIME AND 1 TABLET IN THE EVENING
     Route: 065
     Dates: start: 20061016
  37. MUCOLATOR [Concomitant]
     Route: 065
     Dates: start: 2005, end: 2006
  38. PIRACETAM [Concomitant]
     Active Substance: PIRACETAM
     Dosage: ONE TABLET IN MORNING, ONE TABLET AT LUNCH TIME, ONE TABLET IN EVENING
     Route: 065
     Dates: start: 20070208
  39. STILNOX [Concomitant]
     Active Substance: ZOLPIDEM TARTRATE
     Dosage: ONE AT BEDTIME
     Route: 065
     Dates: start: 20070208
  40. LEXOMIL [Suspect]
     Active Substance: BROMAZEPAM
     Indication: PRODUCT USED FOR UNKNOWN INDICATION
     Dosage: 0.25 IN THE MORNING, 0.25 AT LUNCHTIME, 0.50 IN THE EVENING
     Route: 065
     Dates: start: 20060403
  41. RIVOTRIL [Suspect]
     Active Substance: CLONAZEPAM
     Indication: PAIN
     Route: 065
     Dates: start: 20090616, end: 20090915
  42. LYRICA [Suspect]
     Active Substance: PREGABALIN
     Indication: NEURALGIA
     Route: 065
     Dates: start: 20091119
  43. SEROPRAM [Concomitant]
     Active Substance: CITALOPRAM HYDROBROMIDE
     Dosage: 1 TABLET IN THE MORNING
     Route: 065
     Dates: start: 20070628
  44. PIRACETAM [Concomitant]
     Active Substance: PIRACETAM
     Dosage: ONE TABLET IN MORNING, ONE TABLET AT LUNCH TIME, ONE TABLET IN EVENING
     Route: 065
     Dates: start: 20061116, end: 2007
  45. OMEPRAZOLE. [Concomitant]
     Active Substance: OMEPRAZOLE
     Route: 065
  46. LEXOMIL [Suspect]
     Active Substance: BROMAZEPAM
     Dosage: 0.50 TABLET AT LUNCHTIME AND 1 TABLET IN THE EVENING
     Route: 065
     Dates: start: 20061116
  47. DI-ANTALVIC [Suspect]
     Active Substance: ACETAMINOPHEN\PROPOXYPHENE HYDROCHLORIDE
     Indication: PRODUCT USED FOR UNKNOWN INDICATION
     Dosage: IF PAIN
     Route: 065
     Dates: start: 20050407, end: 2006
  48. DI-ANTALVIC [Suspect]
     Active Substance: ACETAMINOPHEN\PROPOXYPHENE HYDROCHLORIDE
     Dosage: IF PAIN
     Route: 065
     Dates: start: 20070412
  49. VOLTARENE [Concomitant]
     Active Substance: DICLOFENAC SODIUM
     Route: 065
     Dates: start: 20110906
  50. NAPROSYNE [Concomitant]
     Active Substance: NAPROXEN
     Route: 065
     Dates: start: 2005, end: 2006
  51. AMLOR [Concomitant]
     Active Substance: AMLODIPINE BESYLATE
     Route: 065
     Dates: start: 2012
  52. ZOCOR [Concomitant]
     Active Substance: SIMVASTATIN
     Route: 065
     Dates: start: 20050407
  53. SEROPRAM [Concomitant]
     Active Substance: CITALOPRAM HYDROBROMIDE
     Dosage: 1 TABLET IN THE MORNING
     Route: 065
     Dates: start: 20060523, end: 2007

REACTIONS (30)
  - Asthenia [Unknown]
  - Irritability [Unknown]
  - Hypersensitivity [Unknown]
  - Polyneuropathy [Not Recovered/Not Resolved]
  - Periodic limb movement disorder [Not Recovered/Not Resolved]
  - Tremor [Unknown]
  - Vertigo [Unknown]
  - Large intestine polyp [Unknown]
  - Nasal septum deviation [Not Recovered/Not Resolved]
  - Confusional state [Unknown]
  - Nightmare [Unknown]
  - Disturbance in attention [Unknown]
  - Coordination abnormal [Unknown]
  - Feeling drunk [Unknown]
  - Balance disorder [Unknown]
  - Sleep apnoea syndrome [Unknown]
  - Altered state of consciousness [Unknown]
  - Gastritis [Unknown]
  - Abdominal pain [Unknown]
  - Headache [Unknown]
  - Somnolence [Unknown]
  - Muscular weakness [Unknown]
  - Head discomfort [Unknown]
  - Drug hypersensitivity [Unknown]
  - Visual acuity reduced [Not Recovered/Not Resolved]
  - Disorientation [Unknown]
  - Blood pressure decreased [Unknown]
  - Visual impairment [Unknown]
  - Loss of consciousness [Unknown]
  - Sleep apnoea syndrome [Unknown]

NARRATIVE: CASE EVENT DATE: 200707
